FAERS Safety Report 24618342 (Version 3)
Quarter: 2025Q4

REPORT INFORMATION
  Report Type: Report from Study
  Country: JP (occurrence: JP)
  Receive Date: 20241114
  Receipt Date: 20251217
  Transmission Date: 20260118
  Serious: Yes (Hospitalization)
  Sender: ABBVIE
  Company Number: JP-ABBVIE-5988950

PATIENT
  Age: 73 Year
  Sex: Male

DRUGS (1)
  1. VYALEV [Suspect]
     Active Substance: FOSCARBIDOPA\FOSLEVODOPA
     Indication: Parkinson^s disease
     Dosage: DAYTIME (STANDARD): 0.4 ML, NIGHTTIME: 0.2 ML, ED: 0.2 ML (MORNING)
     Route: 058
     Dates: start: 20241016

REACTIONS (9)
  - Malaise [Unknown]
  - Product use issue [Unknown]
  - Product use issue [Unknown]
  - On and off phenomenon [Unknown]
  - Product prescribing error [Unknown]
  - Infusion site reaction [Not Recovered/Not Resolved]
  - Infusion site discharge [Not Recovered/Not Resolved]
  - Anal incontinence [Unknown]
  - Infusion site exfoliation [Not Recovered/Not Resolved]

NARRATIVE: CASE EVENT DATE: 20241001
